FAERS Safety Report 4943547-1 (Version None)
Quarter: 2006Q1

REPORT INFORMATION
  Report Type: 
  Country: None (occurrence: None)
  Receive Date: 20060309
  Receipt Date: 20060223
  Transmission Date: 20060701
  Serious: Yes (Hospitalization, Other)
  Sender: FDA-Public Use
  Company Number: US-2006-003893

PATIENT
  Age: 39 Year
  Sex: Female

DRUGS (1)
  1. BETASERON [Suspect]
     Indication: MULTIPLE SCLEROSIS
     Dosage: 8 MIU, EVERY 2D, SUBCUTANEOUS
     Route: 058
     Dates: start: 20020419

REACTIONS (4)
  - ABSCESS RUPTURE [None]
  - BENIGN NEOPLASM OF BLADDER [None]
  - BREAST DISCHARGE [None]
  - DYSURIA [None]
